FAERS Safety Report 9717520 (Version 1)
Quarter: 2013Q4

REPORT INFORMATION
  Report Type: Spontaneous
  Country: US (occurrence: US)
  Receive Date: 20131127
  Receipt Date: 20131127
  Transmission Date: 20140711
  Serious: No
  Sender: FDA-Public Use
  Company Number: US-GILEAD-2009-0020510

PATIENT
  Age: 68 Year
  Sex: Female
  Weight: 99.79 kg

DRUGS (19)
  1. LETAIRIS [Suspect]
     Indication: PULMONARY ARTERIAL HYPERTENSION
  2. DARVOCET-N [Concomitant]
  3. CYMBALTA [Concomitant]
  4. ALPRAZOLAM [Concomitant]
  5. DYAZIDE [Concomitant]
  6. MIRAPEX [Concomitant]
  7. ULTRACET [Concomitant]
  8. SYNTHROID [Concomitant]
  9. PREDNISONE [Concomitant]
  10. COUMADIN [Concomitant]
  11. LYRICA [Concomitant]
  12. CARDIZEM CD [Concomitant]
  13. ESTRADIOL [Concomitant]
  14. ALENDRONATE [Concomitant]
  15. LANOXIN [Concomitant]
  16. ADVAIR HFA [Concomitant]
  17. CYCLOBENZAPRINE [Concomitant]
  18. PRILOSEC [Concomitant]
  19. TOPROL XL [Concomitant]

REACTIONS (3)
  - Fatigue [Not Recovered/Not Resolved]
  - Dry mouth [Not Recovered/Not Resolved]
  - Oedema peripheral [Not Recovered/Not Resolved]
